FAERS Safety Report 17418769 (Version 1)
Quarter: 2020Q1

REPORT INFORMATION
  Report Type: Spontaneous
  Country: US (occurrence: US)
  Receive Date: 20200214
  Receipt Date: 20200214
  Transmission Date: 20200409
  Serious: No
  Sender: FDA-Public Use
  Company Number: US-ZYDUS-044010

PATIENT
  Age: 68 Year
  Sex: Male

DRUGS (1)
  1. RAMELTEON [Suspect]
     Active Substance: RAMELTEON
     Indication: INSOMNIA
     Route: 048
     Dates: start: 20191014

REACTIONS (1)
  - Condition aggravated [Not Recovered/Not Resolved]

NARRATIVE: CASE EVENT DATE: 201910
